FAERS Safety Report 13438449 (Version 2)
Quarter: 2018Q1

REPORT INFORMATION
  Report Type: Spontaneous
  Country: US (occurrence: US)
  Receive Date: 20170412
  Receipt Date: 20180330
  Transmission Date: 20180508
  Serious: No
  Sender: FDA-Public Use
  Company Number: US-SA-2017SA035235

PATIENT
  Age: 38 Year
  Sex: Female
  Weight: 114 kg

DRUGS (3)
  1. ALLEGRA ALLERGY [Suspect]
     Active Substance: FEXOFENADINE HYDROCHLORIDE
     Indication: HYPERSENSITIVITY
     Route: 065
     Dates: start: 20020302
  2. SELEGILINE [Concomitant]
     Active Substance: SELEGILINE
     Indication: DEPRESSION
     Route: 065
     Dates: start: 200907
  3. RITALIN [Concomitant]
     Active Substance: METHYLPHENIDATE HYDROCHLORIDE
     Indication: ATTENTION DEFICIT/HYPERACTIVITY DISORDER
     Route: 065
     Dates: start: 200707

REACTIONS (1)
  - Accidental overdose [Unknown]
